FAERS Safety Report 9148553 (Version 1)
Quarter: 2013Q1

REPORT INFORMATION
  Report Type: Report from Study
  Country: LB (occurrence: LB)
  Receive Date: 20130308
  Receipt Date: 20130308
  Transmission Date: 20140127
  Serious: Yes (Life-Threatening, Hospitalization)
  Sender: FDA-Public Use
  Company Number: LB-SANOFI-AVENTIS-2013SA022791

PATIENT
  Sex: Male

DRUGS (9)
  1. LANTUS SOLOSTAR [Suspect]
     Indication: DIABETES MELLITUS
     Dosage: DOSE AND DAILY DOSE: 12 U WITH TITRATION DOSE:12 UNIT(S)
     Route: 058
     Dates: start: 2013
  2. LANTUS SOLOSTAR [Suspect]
     Indication: DIABETES MELLITUS
     Dosage: DOSE AND DAILY DOSE: 26 U WITH TITRATION DOSE:26 UNIT(S)
     Route: 058
  3. SOLOSTAR [Suspect]
     Indication: DEVICE THERAPY
     Route: 058
  4. TILDIEM [Concomitant]
     Route: 048
  5. CORVASAL [Concomitant]
     Route: 048
  6. OMNIC [Concomitant]
     Route: 048
  7. ASPIRIN [Concomitant]
     Route: 048
  8. LIPITOR [Concomitant]
     Route: 048
  9. PRAXILENE [Concomitant]
     Route: 048

REACTIONS (1)
  - Lymphoma [Not Recovered/Not Resolved]
